FAERS Safety Report 11718772 (Version 2)
Quarter: 2015Q4

REPORT INFORMATION
  Report Type: Spontaneous
  Country: US (occurrence: US)
  Receive Date: 20151110
  Receipt Date: 20151208
  Transmission Date: 20160304
  Serious: No
  Sender: FDA-Public Use
  Company Number: US-ASTRAZENECA-2004UW06423

PATIENT
  Age: 61 Year
  Sex: Female
  Weight: 54.9 kg

DRUGS (9)
  1. LANTUS [Concomitant]
     Active Substance: INSULIN GLARGINE
  2. LIPITOR [Concomitant]
     Active Substance: ATORVASTATIN CALCIUM
     Indication: BLOOD CHOLESTEROL ABNORMAL
  3. METOPROLOL [Concomitant]
     Active Substance: METOPROLOL
  4. BYDUREON [Suspect]
     Active Substance: EXENATIDE
     Indication: TYPE 2 DIABETES MELLITUS
     Route: 065
  5. BYETTA [Suspect]
     Active Substance: EXENATIDE
     Indication: TYPE 2 DIABETES MELLITUS
     Route: 065
     Dates: end: 201510
  6. LANTUS [Concomitant]
     Active Substance: INSULIN GLARGINE
  7. CRESTOR [Suspect]
     Active Substance: ROSUVASTATIN CALCIUM
     Indication: HYPERCHOLESTEROLAEMIA
     Route: 048
  8. BYDUREON [Suspect]
     Active Substance: EXENATIDE
     Indication: TYPE 2 DIABETES MELLITUS
     Route: 065
     Dates: start: 201510
  9. BYETTA [Suspect]
     Active Substance: EXENATIDE
     Indication: TYPE 2 DIABETES MELLITUS
     Route: 065

REACTIONS (11)
  - Hypoacusis [Unknown]
  - Pollakiuria [Unknown]
  - Bladder pain [Unknown]
  - Renal pain [Unknown]
  - Blood glucose increased [Unknown]
  - Drug dose omission [Unknown]
  - Intentional product misuse [Unknown]
  - Urinary tract infection [Unknown]
  - Tinnitus [Unknown]
  - Thirst [Unknown]
  - Incorrect dose administered by device [Unknown]
